FAERS Safety Report 17421442 (Version 2)
Quarter: 2020Q1

REPORT INFORMATION
  Report Type: Spontaneous
  Country: US (occurrence: US)
  Receive Date: 20200214
  Receipt Date: 20200223
  Transmission Date: 20200409
  Serious: No
  Sender: FDA-Public Use
  Company Number: US-ALEXION PHARMACEUTICALS INC.-A202001929

PATIENT
  Sex: Male

DRUGS (1)
  1. STRENSIQ [Suspect]
     Active Substance: ASFOTASE ALFA
     Indication: HYPOPHOSPHATASIA
     Route: 065

REACTIONS (7)
  - Pain [Unknown]
  - Spinal pain [Unknown]
  - Headache [Unknown]
  - Abdominal pain lower [Unknown]
  - Weight decreased [Unknown]
  - Abdominal pain upper [Unknown]
  - Spondylitis [Unknown]
